FAERS Safety Report 7459839-0 (Version None)
Quarter: 2011Q2

REPORT INFORMATION
  Report Type: 
  Country: None (occurrence: None)
  Receive Date: 20110504
  Receipt Date: 20110504
  Transmission Date: 20111010
  Serious: Yes (Other)
  Sender: FDA-Public Use
  Company Number: None

PATIENT
  Age: 32 Year
  Sex: Female
  Weight: 62.5964 kg

DRUGS (2)
  1. SUBUTEX [Suspect]
     Indication: SUBSTANCE ABUSE
     Dosage: 8 MG 2 TABS DAILY SL
     Route: 060
  2. SUBUTEX [Suspect]
     Indication: DRUG DEPENDENCE
     Dosage: 8 MG 2 TABS DAILY SL
     Route: 060

REACTIONS (2)
  - INTRA-UTERINE DEATH [None]
  - MATERNAL DRUGS AFFECTING FOETUS [None]
